FAERS Safety Report 4996585-7 (Version None)
Quarter: 2006Q2

REPORT INFORMATION
  Report Type: 
  Country: None (occurrence: None)
  Receive Date: 20060505
  Receipt Date: 20060426
  Transmission Date: 20061013
  Serious: Yes (Other)
  Sender: FDA-Public Use
  Company Number: GXKR2006DE02395

PATIENT
  Age: 41 Year
  Sex: Female

DRUGS (1)
  1. PREDNISOLONE [Suspect]
     Dosage: 20 MG, ORAL
     Route: 048

REACTIONS (1)
  - HALLUCINATION, VISUAL [None]
